FAERS Safety Report 6871817-9 (Version None)
Quarter: 2010Q3

REPORT INFORMATION
  Report Type: 
  Country: None (occurrence: None)
  Receive Date: 20100723
  Receipt Date: 20100716
  Transmission Date: 20110219
  Serious: Yes (Other)
  Sender: FDA-Public Use
  Company Number: B0666334A

PATIENT
  Age: 40 Year
  Sex: Female

DRUGS (4)
  1. PAXIL [Suspect]
     Indication: PRODUCT USED FOR UNKNOWN INDICATION
     Dosage: 20MG PER DAY
     Route: 048
     Dates: start: 20100714, end: 20100716
  2. CALONAL [Concomitant]
     Indication: ANALGESIC THERAPY
     Dosage: 600MG PER DAY
     Route: 048
     Dates: start: 20100714
  3. UNKNOWN DRUG [Concomitant]
     Indication: HYPOTONIA
     Dosage: 375MG PER DAY
     Route: 048
     Dates: start: 20100714
  4. MUCOSTA [Concomitant]
     Dosage: 300MG PER DAY
     Route: 048
     Dates: start: 20100714

REACTIONS (3)
  - INSOMNIA [None]
  - LOSS OF CONSCIOUSNESS [None]
  - NAUSEA [None]
